FAERS Safety Report 16715115 (Version 7)
Quarter: 2021Q1

REPORT INFORMATION
  Report Type: Spontaneous
  Country: US (occurrence: US)
  Receive Date: 20190819
  Receipt Date: 20210108
  Transmission Date: 20210419
  Serious: Yes (Hospitalization)
  Sender: FDA-Public Use
  Company Number: US-PFIZER INC-2018161259

PATIENT
  Age: 74 Year
  Sex: Female
  Weight: 75 kg

DRUGS (14)
  1. KETOCONAZOLE. [Concomitant]
     Active Substance: KETOCONAZOLE
     Indication: RASH
     Dosage: UNK, 1X/DAY
     Dates: end: 201904
  2. LYRICA [Suspect]
     Active Substance: PREGABALIN
     Dosage: 300 MG, 1X/DAY (TAKE 1 CAPSULE BY MOUTH NIGHTLY TAKE WITH 200MG TO TOTAL 300MG NIGHTLY)
     Route: 048
  3. LYRICA [Suspect]
     Active Substance: PREGABALIN
     Indication: NEURALGIA
     Dosage: 200 MG, 1X/DAY (TAKE 1 CAPSULE BY MOUTH NIGHTLY)
     Route: 048
  4. LYRICA [Suspect]
     Active Substance: PREGABALIN
     Dosage: 200 MG, DAILY (TAKE 1 CAPSULE BY MOUTH NIGHTLY)
     Route: 048
     Dates: start: 20190814
  5. HYDROCHLOROTHIAZIDE. [Concomitant]
     Active Substance: HYDROCHLOROTHIAZIDE
     Indication: HYPERTENSION
     Dosage: 25 MG, 1X/DAY
     Route: 048
     Dates: start: 1990
  6. PROZAC [Concomitant]
     Active Substance: FLUOXETINE HYDROCHLORIDE
     Indication: DEPRESSION
     Dosage: 30 MG, 1X/DAY
     Route: 048
     Dates: start: 1990
  7. LYRICA [Suspect]
     Active Substance: PREGABALIN
     Indication: FIBROMYALGIA
     Dosage: 200 MG, UNK
     Dates: start: 2000
  8. LYRICA [Suspect]
     Active Substance: PREGABALIN
     Dosage: 250 MG, 1X/DAY (TAKE 200MG AND 50 MG TO TOTAL 250MG NIGHTLY)
  9. LYRICA [Suspect]
     Active Substance: PREGABALIN
     Dosage: 50 MG, DAILY (TAKE 1 CAPSULE BY MOUTH EVERY MORNING)
     Route: 048
  10. BI EST [Concomitant]
     Active Substance: ESTRADIOL\ESTRIOL
     Indication: HORMONE LEVEL ABNORMAL
     Dosage: 1 GTT, 1X/DAY (1 DROP)
     Route: 060
     Dates: start: 1995, end: 201907
  11. MOMETASONE [Concomitant]
     Active Substance: MOMETASONE
     Indication: RASH
     Dosage: UNK, 1X/DAY, AT ONCE A DAY, 3 TIMES A WEEK
     Route: 061
     Dates: start: 2000, end: 2018
  12. FLEXERIL [Concomitant]
     Active Substance: CYCLOBENZAPRINE HYDROCHLORIDE
     Indication: MUSCLE RELEASE
     Dosage: 30 MG, 3X/DAY (THREE TABLETS, THREE TIMES A DAY)
     Route: 048
     Dates: start: 1990
  13. HYDROCORTISONE. [Concomitant]
     Active Substance: HYDROCORTISONE
     Indication: RASH
     Dosage: UNK, 3X/DAY
     Route: 061
     Dates: start: 2000, end: 201904
  14. PROGESTERONE. [Concomitant]
     Active Substance: PROGESTERONE
     Indication: HORMONE LEVEL ABNORMAL
     Dosage: 50 MG, 1X/DAY
     Route: 060
     Dates: start: 1995, end: 201903

REACTIONS (2)
  - Intervertebral disc disorder [Unknown]
  - Tremor [Unknown]
